FAERS Safety Report 9275770 (Version 1)
Quarter: 2013Q2

REPORT INFORMATION
  Report Type: Spontaneous
  Country: US (occurrence: US)
  Receive Date: 20130507
  Receipt Date: 20130507
  Transmission Date: 20140414
  Serious: Yes (Hospitalization, Congenital Anomaly)
  Sender: FDA-Public Use
  Company Number: US-JNJFOC-20130502660

PATIENT
  Sex: Female

DRUGS (1)
  1. TOPAMAX [Suspect]
     Indication: FOETAL EXPOSURE DURING PREGNANCY
     Route: 064

REACTIONS (10)
  - Congenital vesicoureteric reflux [Unknown]
  - Caudal regression syndrome [Unknown]
  - Congenital osteodystrophy [Unknown]
  - Multiple congenital abnormalities [Unknown]
  - Premature baby [Unknown]
  - Respiratory distress [Recovered/Resolved]
  - Renal hypoplasia [Unknown]
  - Patent ductus arteriosus [Unknown]
  - Atrial septal defect [Unknown]
  - Congenital osteodystrophy [Unknown]
